FAERS Safety Report 15309542 (Version 1)
Quarter: 2018Q4

REPORT INFORMATION
  Report Type: Spontaneous
  Country: FR (occurrence: FR)
  Receive Date: 20180823
  Receipt Date: 20180823
  Transmission Date: 20190204
  Serious: Yes (Other)
  Sender: FDA-Public Use
  Company Number: FR-TEVA-2018-FR-945876

PATIENT
  Age: 67 Year
  Sex: Male

DRUGS (2)
  1. HALDOL [Interacting]
     Active Substance: HALOPERIDOL
     Indication: MENTAL DISORDER
     Dosage: 15 MILLIGRAM DAILY;
     Route: 048
     Dates: start: 20180427
  2. FLUCONAZOLE ACTAVIS 200 MG, GELULE [Suspect]
     Active Substance: FLUCONAZOLE
     Indication: CANDIDA INFECTION
     Dosage: 200 MILLIGRAM DAILY;
     Route: 048
     Dates: start: 20180427, end: 20180511

REACTIONS (2)
  - Drug interaction [Unknown]
  - Blood creatine phosphokinase increased [Recovered/Resolved]

NARRATIVE: CASE EVENT DATE: 20180501
